FAERS Safety Report 18233090 (Version 3)
Quarter: 2021Q1

REPORT INFORMATION
  Report Type: Spontaneous
  Country: US (occurrence: US)
  Receive Date: 20200904
  Receipt Date: 20210222
  Transmission Date: 20210419
  Serious: No
  Sender: FDA-Public Use
  Company Number: US-GLAXOSMITHKLINE-US2020AMR177866

PATIENT
  Sex: Female

DRUGS (3)
  1. ZEJULA [Suspect]
     Active Substance: NIRAPARIB
     Indication: ENDOMETRIAL CANCER
     Dosage: 200 MG, QD
     Dates: start: 20200626
  2. ZEJULA [Suspect]
     Active Substance: NIRAPARIB
     Dosage: 200 MG
     Dates: start: 20200817, end: 20201202
  3. ZEJULA [Suspect]
     Active Substance: NIRAPARIB
     Dosage: 100 MG
     Dates: end: 20210212

REACTIONS (7)
  - Balance disorder [Unknown]
  - Heart rate increased [Unknown]
  - Dizziness [Unknown]
  - Laboratory test abnormal [Unknown]
  - Paraesthesia [Unknown]
  - Therapy interrupted [Unknown]
  - Product use in unapproved indication [Unknown]
